FAERS Safety Report 6457815-8 (Version None)
Quarter: 2009Q4

REPORT INFORMATION
  Report Type: 
  Country: None (occurrence: None)
  Receive Date: 20091120
  Receipt Date: 20091106
  Transmission Date: 20100525
  Serious: Yes (Life-Threatening, Hospitalization)
  Sender: FDA-Public Use
  Company Number: 8052578

PATIENT
  Age: 58 Year
  Sex: Female
  Weight: 96.08 kg

DRUGS (11)
  1. CERTOLIZUMAB PEGOL [Suspect]
     Indication: RHEUMATOID ARTHRITIS
     Dosage: 400 MG 1/2W SC
     Route: 058
     Dates: start: 20060413, end: 20071204
  2. CERTOLIZUMAB PEGOL [Suspect]
     Indication: RHEUMATOID ARTHRITIS
     Dosage: 200 MG 1/2W SC
     Route: 058
     Dates: start: 20071218, end: 20090928
  3. METHOTREXATE [Concomitant]
  4. METHYLPREDNISOLONE [Concomitant]
  5. FOLIC ACID [Concomitant]
  6. CALCIUM CARBONATE [Concomitant]
  7. ERGOCALCIFEROL [Concomitant]
  8. INDAPAMIDE [Concomitant]
  9. PERINDOPRIL [Concomitant]
  10. ISONIAZID [Concomitant]
  11. PYRIDOXINE [Concomitant]

REACTIONS (10)
  - CHOLELITHIASIS [None]
  - GASTRIC CANCER STAGE IV [None]
  - LUMBAR VERTEBRAL FRACTURE [None]
  - METASTASES TO BONE [None]
  - METASTASES TO LIVER [None]
  - METASTASES TO LUNG [None]
  - METASTASES TO SPINE [None]
  - NEPHROLITHIASIS [None]
  - OSTEOPOROTIC FRACTURE [None]
  - UTERINE LEIOMYOMA [None]
